FAERS Safety Report 4521156-6 (Version None)
Quarter: 2004Q4

REPORT INFORMATION
  Report Type: 
  Country: None (occurrence: None)
  Receive Date: 20041208
  Receipt Date: 20041203
  Transmission Date: 20050328
  Serious: Yes (Disabling, Other)
  Sender: FDA-Public Use
  Company Number: GB-MERCK-0412GBR00043

PATIENT
  Age: 68 Year
  Sex: Female
  Weight: 68 kg

DRUGS (7)
  1. FOSAMAX [Suspect]
     Indication: OSTEOPOROSIS POSTMENOPAUSAL
     Route: 048
     Dates: start: 20040909, end: 20041019
  2. ACETAMINOPHEN [Concomitant]
     Route: 065
     Dates: start: 19970122
  3. SALMETEROL [Concomitant]
     Route: 055
     Dates: start: 20010302
  4. FLUTICASONE PROPIONATE [Concomitant]
     Route: 055
     Dates: start: 20040816
  5. SINGULAIR [Concomitant]
     Route: 048
     Dates: start: 20040816
  6. ALBUTEROL [Concomitant]
     Route: 055
     Dates: start: 20040816
  7. ACETAMINOPHEN AND CODEINE PHOSPHATE [Concomitant]
     Route: 065
     Dates: end: 20041101

REACTIONS (1)
  - ARTHRITIS [None]
